FAERS Safety Report 9089683 (Version 1)
Quarter: 2013Q1

REPORT INFORMATION
  Report Type: Report from Study
  Country: US (occurrence: US)
  Receive Date: 20130131
  Receipt Date: 20130131
  Transmission Date: 20140127
  Serious: No
  Sender: FDA-Public Use
  Company Number: US-ABBOTT-12P-163-1011473-00

PATIENT
  Sex: Male

DRUGS (4)
  1. HUMIRA [Suspect]
     Indication: CROHN^S DISEASE
     Route: 058
     Dates: start: 201208, end: 201208
  2. HUMIRA [Suspect]
     Route: 058
     Dates: start: 201208, end: 201208
  3. HUMIRA [Suspect]
     Route: 058
     Dates: start: 201210, end: 201211
  4. HUMIRA [Suspect]
     Route: 058
     Dates: start: 201211

REACTIONS (3)
  - Red blood cell sedimentation rate increased [Unknown]
  - Drug effect incomplete [Unknown]
  - Headache [Not Recovered/Not Resolved]
